FAERS Safety Report 21382316 (Version 1)
Quarter: 2022Q3

REPORT INFORMATION
  Report Type: 
  Country: US (occurrence: US)
  Receive Date: 20220927
  Receipt Date: 20220927
  Transmission Date: 20221026
  Serious: No
  Sender: FDA-Public Use
  Company Number: US-C B Fleet Co Inc-202207-US-002252

PATIENT
  Age: 72 Year
  Sex: Female

DRUGS (2)
  1. MONISTAT 7 7-DAY DISPOSABLE APPLICATORS [Suspect]
     Active Substance: MICONAZOLE NITRATE
     Indication: Vaginal discharge
     Dosage: USED FOR ABOUT 4 DAYS
     Route: 067
  2. MONISTAT 7 7-DAY DISPOSABLE APPLICATORS [Suspect]
     Active Substance: MICONAZOLE NITRATE
     Indication: Vaginal odour

REACTIONS (3)
  - Vaginal haemorrhage [Recovered/Resolved]
  - Vaginal discharge [Recovered/Resolved]
  - Product use in unapproved indication [None]
